FAERS Safety Report 5809195-6 (Version None)
Quarter: 2008Q3

REPORT INFORMATION
  Report Type: 
  Country: None (occurrence: None)
  Receive Date: 20080714
  Receipt Date: 20080702
  Transmission Date: 20090109
  Serious: Yes (Other)
  Sender: FDA-Public Use
  Company Number: GB-PFIZER INC-2008055651

PATIENT
  Sex: Female

DRUGS (4)
  1. CHANTIX [Suspect]
     Indication: SMOKING CESSATION THERAPY
     Route: 048
     Dates: start: 20080515, end: 20080522
  2. CLONIDINE [Concomitant]
     Route: 048
  3. PRIADEL [Concomitant]
  4. TERBUTALINE SULFATE [Concomitant]
     Route: 055

REACTIONS (6)
  - ABDOMINAL DISTENSION [None]
  - BIPOLAR I DISORDER [None]
  - NAUSEA [None]
  - SUICIDAL IDEATION [None]
  - TREMOR [None]
  - VOMITING [None]
